FAERS Safety Report 13239923 (Version 4)
Quarter: 2019Q3

REPORT INFORMATION
  Report Type: Spontaneous
  Country: US (occurrence: US)
  Receive Date: 20170216
  Receipt Date: 20190805
  Transmission Date: 20191004
  Serious: No
  Sender: FDA-Public Use
  Company Number: US-PFIZER INC-2017064248

PATIENT
  Age: 33 Year
  Sex: Female

DRUGS (1)
  1. XELJANZ XR [Suspect]
     Active Substance: TOFACITINIB CITRATE
     Dosage: 11 MG, DAILY

REACTIONS (4)
  - Synovial disorder [Unknown]
  - Maternal exposure during pregnancy [Unknown]
  - Arthralgia [Unknown]
  - Musculoskeletal stiffness [Unknown]
